FAERS Safety Report 20751614 (Version 1)
Quarter: 2022Q2

REPORT INFORMATION
  Report Type: Spontaneous
  Country: US (occurrence: US)
  Receive Date: 20220426
  Receipt Date: 20220426
  Transmission Date: 20220720
  Serious: Yes (Other)
  Sender: FDA-Public Use
  Company Number: US-ABBVIE-22K-163-4371699-00

PATIENT
  Sex: Female

DRUGS (2)
  1. SYNTHROID [Suspect]
     Active Substance: LEVOTHYROXINE SODIUM
     Indication: Product used for unknown indication
     Route: 048
  2. SYNTHROID [Suspect]
     Active Substance: LEVOTHYROXINE SODIUM
     Route: 048

REACTIONS (8)
  - Thyroidectomy [Unknown]
  - Basedow^s disease [Unknown]
  - Radioactive iodine therapy [Unknown]
  - Ear infection [Unknown]
  - Meniere^s disease [Unknown]
  - Blood thyroid stimulating hormone decreased [Recovered/Resolved]
  - Blood thyroid stimulating hormone increased [Unknown]
  - Malaise [Unknown]

NARRATIVE: CASE EVENT DATE: 19750101
